FAERS Safety Report 11570381 (Version 1)
Quarter: 2015Q3

REPORT INFORMATION
  Report Type: Spontaneous
  Country: US (occurrence: None)
  Receive Date: 20150928
  Receipt Date: 20150928
  Transmission Date: 20151125
  Serious: Yes (Disabling)
  Sender: FDA-Public Use
  Company Number: None

PATIENT
  Age: 44 Year
  Sex: Female
  Weight: 47.63 kg

DRUGS (5)
  1. MULTI-VITAMINS (CALCIUM PANTOTHENATE, FOLIC ACID, VITAMINS NOS) [Concomitant]
     Active Substance: VITAMINS
  2. BUPROPRION [Suspect]
     Active Substance: BUPROPION
     Indication: DEPRESSION
     Dosage: 2 X 300 MG
     Route: 048
     Dates: start: 20150202, end: 20150823
  3. BUPROPRIAN [Concomitant]
  4. HAIR GROWTH VITAMINS [Concomitant]
  5. BUPROPRION [Suspect]
     Active Substance: BUPROPION
     Indication: HYPOAESTHESIA
     Dosage: 2 X 300 MG
     Route: 048
     Dates: start: 20150202, end: 20150823

REACTIONS (9)
  - Tenderness [None]
  - Tremor [None]
  - Pain [None]
  - Skin disorder [None]
  - Orgasmic sensation decreased [None]
  - Secretion discharge [None]
  - Alopecia [None]
  - Scab [None]
  - Burning sensation [None]

NARRATIVE: CASE EVENT DATE: 20150718
